FAERS Safety Report 20930197 (Version 2)
Quarter: 2022Q3

REPORT INFORMATION
  Report Type: Report from Study
  Country: DE (occurrence: DE)
  Receive Date: 20220608
  Receipt Date: 20220715
  Transmission Date: 20221027
  Serious: Yes (Death, Life-Threatening, Hospitalization, Other)
  Sender: FDA-Public Use
  Company Number: DE-BRISTOL-MYERS SQUIBB COMPANY-BMS-2022-007306

PATIENT
  Age: 63 Year
  Sex: Male

DRUGS (7)
  1. NIVOLUMAB [Suspect]
     Active Substance: NIVOLUMAB
     Indication: Malignant melanoma
     Dosage: 240 MILLIGRAM, Q2WK
     Route: 042
     Dates: start: 20191122, end: 20200127
  2. NIVOLUMAB [Suspect]
     Active Substance: NIVOLUMAB
     Route: 065
     Dates: start: 20200414, end: 20211213
  3. NIVOLUMAB [Suspect]
     Active Substance: NIVOLUMAB
     Route: 065
     Dates: start: 20211227, end: 20220304
  4. IPILIMUMAB [Suspect]
     Active Substance: IPILIMUMAB
     Indication: Malignant melanoma
     Dosage: 483 MILLIGRAM, Q3WK
     Route: 042
     Dates: start: 20191122, end: 20200127
  5. IPILIMUMAB [Suspect]
     Active Substance: IPILIMUMAB
     Route: 065
     Dates: start: 20211227, end: 20220304
  6. BUDESONIDE [Concomitant]
     Active Substance: BUDESONIDE
     Indication: Product used for unknown indication
     Route: 065
  7. METHYLPREDNISOLONE [Concomitant]
     Active Substance: METHYLPREDNISOLONE
     Indication: Product used for unknown indication
     Route: 065

REACTIONS (10)
  - Rheumatic disorder [Fatal]
  - Metastases to central nervous system [Fatal]
  - Metastases to lymph nodes [Fatal]
  - Metastases to bone [Fatal]
  - Malignant neoplasm progression [Fatal]
  - Aspartate aminotransferase increased [Recovering/Resolving]
  - Alanine aminotransferase increased [Recovering/Resolving]
  - Anaemia [Not Recovered/Not Resolved]
  - Off label use [Unknown]
  - Condition aggravated [Fatal]

NARRATIVE: CASE EVENT DATE: 20200215
